FAERS Safety Report 8784383 (Version 1)
Quarter: 2012Q4

REPORT INFORMATION
  Report Type: 
  Country: US (occurrence: US)
  Receive Date: 20120913
  Receipt Date: 20120913
  Transmission Date: 20130627
  Serious: No
  Sender: FDA-Public Use
  Company Number: US-ASTRAZENECA-2012SE65754

PATIENT
  Sex: Female

DRUGS (3)
  1. NEXIUM [Suspect]
     Route: 048
  2. PROTINEX [Concomitant]
  3. ACIPHEX [Concomitant]

REACTIONS (2)
  - Pain [Unknown]
  - Intentional drug misuse [Unknown]
